FAERS Safety Report 22311079 (Version 2)
Quarter: 2023Q2

REPORT INFORMATION
  Report Type: Report from Study
  Country: US (occurrence: US)
  Receive Date: 20230511
  Receipt Date: 20230518
  Transmission Date: 20230722
  Serious: Yes (Hospitalization, Other)
  Sender: FDA-Public Use
  Company Number: US-002147023-NVSC2023US105483

PATIENT
  Sex: Male
  Weight: 106.1 kg

DRUGS (14)
  1. IBUPROFEN [Suspect]
     Active Substance: IBUPROFEN
     Indication: Psoriasis
     Dosage: 200 MG, TID
     Route: 048
  2. IBUPROFEN [Suspect]
     Active Substance: IBUPROFEN
     Indication: Arthritis
  3. CLOBETASOL [Suspect]
     Active Substance: CLOBETASOL
     Indication: Psoriasis
     Dosage: 0.05 %, BID
     Route: 065
  4. CLOBETASOL [Suspect]
     Active Substance: CLOBETASOL
     Indication: Arthritis
     Dosage: 0.05 %, PRN
     Route: 065
  5. KETOCONAZOLE [Suspect]
     Active Substance: KETOCONAZOLE
     Indication: Psoriasis
     Dosage: 2 % (2-3 TIMES PER WEEK)
     Route: 061
  6. KETOCONAZOLE [Suspect]
     Active Substance: KETOCONAZOLE
     Indication: Arthritis
  7. CYCLOSPORINE [Suspect]
     Active Substance: CYCLOSPORINE
     Indication: Psoriasis
     Dosage: 100 MG, BID
     Route: 048
  8. CYCLOSPORINE [Suspect]
     Active Substance: CYCLOSPORINE
     Indication: Arthritis
  9. FAMOTIDINE [Suspect]
     Active Substance: FAMOTIDINE
     Indication: Psoriasis
     Dosage: 20 MG, PRN
     Route: 048
  10. FAMOTIDINE [Suspect]
     Active Substance: FAMOTIDINE
     Indication: Arthritis
  11. DESONIDE [Suspect]
     Active Substance: DESONIDE
     Indication: Psoriasis
     Dosage: 0.05 %, BID
     Route: 065
  12. DESONIDE [Suspect]
     Active Substance: DESONIDE
     Indication: Arthritis
  13. PHENTERMINE HYDROCHLORIDE [Suspect]
     Active Substance: PHENTERMINE HYDROCHLORIDE
     Indication: Psoriasis
     Dosage: UNK
     Route: 065
  14. CIMZIA [Concomitant]
     Active Substance: CERTOLIZUMAB PEGOL
     Indication: Product used for unknown indication
     Dosage: UNK
     Route: 065

REACTIONS (4)
  - Infection [Unknown]
  - Osteomyelitis [Unknown]
  - Pain [Unknown]
  - Treatment failure [Unknown]
